FAERS Safety Report 14862898 (Version 1)
Quarter: 2018Q2

REPORT INFORMATION
  Report Type: Spontaneous
  Country: CA (occurrence: CA)
  Receive Date: 20180508
  Receipt Date: 20180508
  Transmission Date: 20180711
  Serious: Yes (Hospitalization)
  Sender: FDA-Public Use
  Company Number: CA-TEVA-2018-CA-888514

PATIENT
  Age: 52 Year
  Sex: Female

DRUGS (8)
  1. DEHYDROEPIANDROSTERONE [Suspect]
     Active Substance: PRASTERONE
     Route: 067
  2. BUDESONIDE. [Concomitant]
     Active Substance: BUDESONIDE
  3. PROGESTERONE. [Suspect]
     Active Substance: PROGESTERONE
     Indication: MENOPAUSE
     Route: 065
  4. ESTRADIOL. [Suspect]
     Active Substance: ESTRADIOL
     Route: 065
  5. CLARITIN [Concomitant]
     Active Substance: LORATADINE
  6. LORATADINE TABLETS 10MG [Suspect]
     Active Substance: LORATADINE
     Route: 048
  7. BUDESONIDE. [Suspect]
     Active Substance: BUDESONIDE
     Route: 065
  8. THYROID HORMONES [Suspect]
     Active Substance: UNSPECIFIED INGREDIENT
     Route: 065

REACTIONS (9)
  - Cellulitis [Unknown]
  - Feeling hot [Unknown]
  - Rash [Unknown]
  - Head discomfort [Unknown]
  - Swelling face [Unknown]
  - Butterfly rash [Unknown]
  - Periorbital oedema [Unknown]
  - Photosensitivity reaction [Unknown]
  - Tinnitus [Unknown]
